FAERS Safety Report 12290996 (Version 3)
Quarter: 2016Q2

REPORT INFORMATION
  Report Type: Spontaneous
  Country: DE (occurrence: DE)
  Receive Date: 20160421
  Receipt Date: 20160606
  Transmission Date: 20160815
  Serious: Yes (Other)
  Sender: FDA-Public Use
  Company Number: DE-JNJFOC-20160411539

PATIENT
  Age: 66 Year
  Sex: Female
  Weight: 65 kg

DRUGS (9)
  1. ENALAPRIL [Concomitant]
     Active Substance: ENALAPRIL
     Indication: HYPERTENSION
     Dosage: 20 MG TABLET IN THE MORNING/EVENING/NIGHT
     Route: 065
  2. XARELTO [Suspect]
     Active Substance: RIVAROXABAN
     Indication: CEREBROVASCULAR ACCIDENT PROPHYLAXIS
     Route: 048
     Dates: start: 20160325, end: 20160408
  3. AMLODIPINE [Concomitant]
     Active Substance: AMLODIPINE BESYLATE
     Indication: HYPERTENSION
     Dosage: 5 MG TABLET IN THE MORNING/EVENING
     Route: 065
     Dates: start: 20130822
  4. XARELTO [Suspect]
     Active Substance: RIVAROXABAN
     Indication: ATRIAL FIBRILLATION
     Route: 048
     Dates: start: 20160325, end: 20160408
  5. BISOPROLOL [Concomitant]
     Active Substance: BISOPROLOL
     Indication: HYPERTENSION
     Dosage: 5 MG TABLET IN MORNING/EVENING
     Route: 065
     Dates: start: 20150701
  6. L-THYROXIN [Concomitant]
     Active Substance: LEVOTHYROXINE SODIUM
     Indication: HYPOTHYROIDISM
     Route: 065
     Dates: start: 20120302
  7. GELOMYRTOL [Concomitant]
     Route: 065
  8. FENISTIL [Concomitant]
     Active Substance: DIMETHINDENE
     Indication: HYPERSENSITIVITY
     Route: 065
     Dates: start: 20150324, end: 20150325
  9. ACETYLCYSTEINE. [Concomitant]
     Active Substance: ACETYLCYSTEINE
     Route: 065

REACTIONS (3)
  - Skin haemorrhage [Recovering/Resolving]
  - Proteinuria [Unknown]
  - Vasculitis [Recovering/Resolving]

NARRATIVE: CASE EVENT DATE: 20160406
